FAERS Safety Report 5315700-9 (Version None)
Quarter: 2007Q2

REPORT INFORMATION
  Report Type: 
  Country: None (occurrence: None)
  Receive Date: 20070430
  Receipt Date: 20070430
  Transmission Date: 20071010
  Serious: Yes (Hospitalization)
  Sender: FDA-Public Use
  Company Number: None

PATIENT
  Age: 30 Year
  Sex: Male

DRUGS (2)
  1. HALOPERIDOL [Suspect]
     Indication: AGITATION
     Dosage: 2MG  TWICE DAILY  IV
     Route: 042
     Dates: start: 20060814, end: 20060818
  2. RISPERIDONE [Suspect]
     Indication: AGITATION
     Dosage: 2MG  TWICE DAILY  IV
     Route: 042
     Dates: start: 20060815, end: 20060818

REACTIONS (5)
  - HEART RATE INCREASED [None]
  - HYPERHIDROSIS [None]
  - HYPERTENSION [None]
  - NEUROLEPTIC MALIGNANT SYNDROME [None]
  - TACHYCARDIA [None]
